FAERS Safety Report 16868048 (Version 1)
Quarter: 2019Q3

REPORT INFORMATION
  Report Type: Spontaneous
  Country: US (occurrence: US)
  Receive Date: 20190930
  Receipt Date: 20190930
  Transmission Date: 20191005
  Serious: No
  Sender: FDA-Public Use
  Company Number: US-PFIZER INC-2019324006

PATIENT
  Age: 62 Year
  Sex: Male

DRUGS (2)
  1. CAMPTOSAR [Suspect]
     Active Substance: IRINOTECAN HYDROCHLORIDE
     Dosage: 130 MG, CYCLIC (DAYS 1, 8, 15, AND 28, THEN EVERY 28 DAYS)
     Dates: start: 20190814
  2. CAMPTOSAR [Suspect]
     Active Substance: IRINOTECAN HYDROCHLORIDE
     Indication: SMALL CELL LUNG CANCER
     Dosage: 290 MG, (EVERY 14 DAYS)

REACTIONS (3)
  - Diarrhoea [Unknown]
  - Off label use [Unknown]
  - Product use in unapproved indication [Unknown]
